FAERS Safety Report 8391045-8 (Version None)
Quarter: 2012Q2

REPORT INFORMATION
  Report Type: 
  Country: None (occurrence: None)
  Receive Date: 20120529
  Receipt Date: 20120521
  Transmission Date: 20120825
  Serious: Yes (Other)
  Sender: FDA-Public Use
  Company Number: US-BAYER-2012-050963

PATIENT
  Age: 51 Year
  Sex: Female

DRUGS (8)
  1. DROSPIRENONE AND ETHINYL ESTRADIOL [Suspect]
  2. YAZ [Suspect]
  3. TRAZODONE HCL [Concomitant]
     Indication: INSOMNIA
     Dosage: 150 MG, UNK
     Route: 048
  4. TAMIFLU [Concomitant]
     Dosage: 75 MG, UNK
     Route: 048
  5. YASMIN [Suspect]
  6. AMOXICILLIN [Concomitant]
     Dosage: 500 MG, UNK
     Route: 048
  7. ACCUPRIL [Concomitant]
     Indication: HYPERTENSION
     Dosage: 10 MG, DAILY
     Route: 048
  8. HYDROCHLOROTHIAZIDE [Concomitant]
     Indication: HYPERTENSION
     Dosage: 25 MG, DAILY
     Route: 048

REACTIONS (1)
  - CEREBRAL INFARCTION [None]
